FAERS Safety Report 26134827 (Version 1)
Quarter: 2025Q4

REPORT INFORMATION
  Report Type: Spontaneous
  Country: US (occurrence: None)
  Receive Date: 20251208
  Receipt Date: 20251208
  Transmission Date: 20260117
  Serious: No
  Sender: FDA-CTU
  Company Number: None

PATIENT
  Sex: Female

DRUGS (2)
  1. HYDROXYZINE HYDROCHLORIDE [Suspect]
     Active Substance: HYDROXYZINE HYDROCHLORIDE
     Route: 048
  2. HYDRALAZINE HCL [Suspect]
     Active Substance: HYDRALAZINE HYDROCHLORIDE
     Route: 048

REACTIONS (8)
  - Dizziness [None]
  - Formication [None]
  - Product dispensing error [None]
  - Wrong product administered [None]
  - Wrong patient received product [None]
  - Therapy interrupted [None]
  - Product name confusion [None]
  - Product name confusion [None]

NARRATIVE: CASE EVENT DATE: 20251107
